FAERS Safety Report 11444752 (Version 1)
Quarter: 2015Q3

REPORT INFORMATION
  Report Type: Spontaneous
  Country: US (occurrence: None)
  Receive Date: 20150831
  Receipt Date: 20150831
  Transmission Date: 20151125
  Serious: Yes (Disabling, Other)
  Sender: FDA-Public Use
  Company Number: None

PATIENT
  Age: 55 Year
  Sex: Male
  Weight: 113.4 kg

DRUGS (18)
  1. JANUVIA [Suspect]
     Active Substance: SITAGLIPTIN PHOSPHATE
     Indication: TYPE 2 DIABETES MELLITUS
     Route: 048
  2. METOPROLOL [Concomitant]
     Active Substance: METOPROLOL
  3. ASPIRIN. [Concomitant]
     Active Substance: ASPIRIN
  4. HYDROCHLOROTHIAZIDE. [Concomitant]
     Active Substance: HYDROCHLOROTHIAZIDE
  5. FIBER [Concomitant]
     Active Substance: PSYLLIUM HUSK
  6. LANTUS [Concomitant]
     Active Substance: INSULIN GLARGINE
  7. ACTOS [Concomitant]
     Active Substance: PIOGLITAZONE HYDROCHLORIDE
  8. ALLOPURINOL. [Concomitant]
     Active Substance: ALLOPURINOL
  9. NEXIUM [Concomitant]
     Active Substance: ESOMEPRAZOLE MAGNESIUM
  10. FOLIC ACID. [Concomitant]
     Active Substance: FOLIC ACID
  11. LOSARTAN. [Concomitant]
     Active Substance: LOSARTAN
  12. BIOTIN [Concomitant]
     Active Substance: BIOTIN
  13. LOVAZA [Concomitant]
     Active Substance: OMEGA-3-ACID ETHYL ESTERS
  14. FREESTYLE FREEDOM LITE [Concomitant]
  15. PROBIOTICS [Concomitant]
     Active Substance: PROBIOTICS NOS
  16. VITAMIN C [Concomitant]
     Active Substance: ASCORBIC ACID
  17. D-3 [Concomitant]
     Active Substance: CHOLECALCIFEROL
  18. CRESTOR [Concomitant]
     Active Substance: ROSUVASTATIN CALCIUM

REACTIONS (3)
  - Arthralgia [None]
  - Gait disturbance [None]
  - Periarthritis [None]

NARRATIVE: CASE EVENT DATE: 20130801
